FAERS Safety Report 11872407 (Version 1)
Quarter: 2015Q4

REPORT INFORMATION
  Report Type: Spontaneous
  Country: DE (occurrence: DE)
  Receive Date: 20151228
  Receipt Date: 20151228
  Transmission Date: 20160305
  Serious: Yes (Hospitalization)
  Sender: FDA-Public Use
  Company Number: DE-PFIZER INC-2015466476

PATIENT
  Age: 71 Year
  Sex: Female
  Weight: 65 kg

DRUGS (5)
  1. ASPIRIN. [Concomitant]
     Active Substance: ASPIRIN
     Indication: CORONARY ARTERY DISEASE
     Dosage: 100 MG, UNK
     Route: 048
  2. ACICLOVIR [Concomitant]
     Active Substance: ACYCLOVIR
     Indication: MENINGOENCEPHALITIS HERPETIC
     Dosage: 750 MG, 3X/DAY
     Route: 042
     Dates: start: 20151024, end: 20151121
  3. BISOPROLOL [Concomitant]
     Active Substance: BISOPROLOL
     Indication: HEART RATE
     Dosage: 5 MG, UNK
     Route: 048
  4. SIMVASTATIN. [Concomitant]
     Active Substance: SIMVASTATIN
     Indication: HYPERCHOLESTEROLAEMIA
     Dosage: 20 MG, UNK
     Route: 048
  5. VENLAFAXINE HCL [Suspect]
     Active Substance: VENLAFAXINE HYDROCHLORIDE
     Indication: DEPRESSION
     Dosage: 150 MG, UNK
     Route: 048
     Dates: end: 201511

REACTIONS (2)
  - Long QT syndrome [Recovering/Resolving]
  - Torsade de pointes [Recovering/Resolving]

NARRATIVE: CASE EVENT DATE: 20151103
